FAERS Safety Report 14223981 (Version 1)
Quarter: 2017Q4

REPORT INFORMATION
  Report Type: Spontaneous
  Country: US (occurrence: US)
  Receive Date: 20171122
  Receipt Date: 20171122
  Transmission Date: 20180321
  Serious: No
  Sender: FDA-Public Use
  Company Number: None

PATIENT
  Age: 67 Year
  Sex: Male
  Weight: 119.25 kg

DRUGS (44)
  1. IVIG [Concomitant]
     Active Substance: HUMAN IMMUNOGLOBULIN G
  2. BUPROPRION XL [Concomitant]
     Active Substance: BUPROPION
  3. SODIUM FLUORIDE. [Concomitant]
     Active Substance: SODIUM FLUORIDE
  4. ALLEGRA [Concomitant]
     Active Substance: FEXOFENADINE HYDROCHLORIDE
  5. METROGEL TOPICAL [Concomitant]
  6. IMPLANTED LENS OS SERIAL NUMBER 10966956 078 [Concomitant]
  7. SINGULAIR [Concomitant]
     Active Substance: MONTELUKAST SODIUM
  8. LIDOCAINE PATCH 5% [Concomitant]
     Active Substance: LIDOCAINE
  9. SILDENAFIL. [Concomitant]
     Active Substance: SILDENAFIL
  10. ADDERALL XR [Concomitant]
     Active Substance: AMPHETAMINE ASPARTATE\AMPHETAMINE SULFATE\DEXTROAMPHETAMINE SACCHARATE\DEXTROAMPHETAMINE SULFATE
  11. LASIX [Concomitant]
     Active Substance: FUROSEMIDE
  12. KETOCONAZOLE TOPICAL CREAM [Concomitant]
     Active Substance: KETOCONAZOLE
  13. MEDTRONIC PACEMAKER LEAD (5076-52CM) [Concomitant]
  14. LIDOCAINE PATCH 5% [Suspect]
     Active Substance: LIDOCAINE
     Indication: BACK PAIN
     Dosage: ?          OTHER STRENGTH:PATCH;QUANTITY:1 EACH; DAILY?TRANSDERMAL
     Route: 062
     Dates: start: 20171117, end: 20171121
  15. DOCUSATE SODIUM. [Concomitant]
     Active Substance: DOCUSATE SODIUM
  16. BROVANA [Concomitant]
     Active Substance: ARFORMOTEROL TARTRATE
  17. TESTOPEL [Concomitant]
     Active Substance: TESTOSTERONE
  18. POTASSIUM CHLORIDE 10% 20MEQ/15ML ELIXIR, [Suspect]
     Active Substance: POTASSIUM CHLORIDE
  19. FLONASE [Concomitant]
     Active Substance: FLUTICASONE PROPIONATE
  20. ATENOLOL. [Concomitant]
     Active Substance: ATENOLOL
  21. DIOVAN [Concomitant]
     Active Substance: VALSARTAN
  22. PACEMAKER MEDTRONIC MODEL ADAPTA DR ADDR01 SERIAL NUMBER PWB317414H [Concomitant]
  23. IMPLANTED LENS OD SERIAL NUMBER 10978691 052 [Concomitant]
  24. NATURE^S BOUNTY [Concomitant]
  25. OTC B-100 B COMPLEX VITAMINS [Concomitant]
  26. DIVALPROEX [Concomitant]
     Active Substance: DIVALPROEX SODIUM
  27. ALBUTEROL INH [Concomitant]
     Active Substance: ALBUTEROL
  28. NITRO LINGUAL SPRAY [Concomitant]
  29. VITAMIN C 500MG [Concomitant]
  30. PRIMIDONE. [Concomitant]
     Active Substance: PRIMIDONE
  31. ALLOPURINAL [Concomitant]
     Active Substance: ALLOPURINOL
  32. JARDIANCE [Concomitant]
     Active Substance: EMPAGLIFLOZIN
  33. LIPITOR [Concomitant]
     Active Substance: ATORVASTATIN CALCIUM
  34. MELATONIN [Concomitant]
     Active Substance: MELATONIN
  35. NEURONTIN [Concomitant]
     Active Substance: GABAPENTIN
  36. CELLUVISC OPT 1% SOLUTION [Concomitant]
  37. PURALUBE [Concomitant]
     Active Substance: MINERAL OIL\PETROLATUM
  38. OTC MAGNESIUM 250MG [Concomitant]
  39. MULTIVITAMIN PURITANS PRIDE ULTRA MAN 50 [Concomitant]
  40. BUSPIRONE [Concomitant]
     Active Substance: BUSPIRONE HYDROCHLORIDE
  41. SPIRIVA [Concomitant]
     Active Substance: TIOTROPIUM BROMIDE MONOHYDRATE
  42. ASPIRIN. [Concomitant]
     Active Substance: ASPIRIN
  43. LACTOBACILLUS ACIDOPHILUS [Concomitant]
     Active Substance: LACTOBACILLUS ACIDOPHILUS
  44. OTC VITAMIN D3 10,000 IU [Concomitant]

REACTIONS (6)
  - Application site discomfort [None]
  - Product adhesion issue [None]
  - Pain [None]
  - Drug ineffective [None]
  - Skin discomfort [None]
  - Product substitution issue [None]

NARRATIVE: CASE EVENT DATE: 20171121
